FAERS Safety Report 13791175 (Version 3)
Quarter: 2020Q2

REPORT INFORMATION
  Report Type: Spontaneous
  Country: CA (occurrence: CA)
  Receive Date: 20170725
  Receipt Date: 20200604
  Transmission Date: 20200713
  Serious: Yes (Other)
  Sender: FDA-Public Use
  Company Number: CA-PFIZER INC-2017319297

PATIENT
  Age: 56 Year
  Sex: Female

DRUGS (5)
  1. PREDNISONE. [Concomitant]
     Active Substance: PREDNISONE
     Dosage: 3 MG, DAILY
  2. PLAQUENIL [HYDROXYCHLOROQUINE PHOSPHATE] [Concomitant]
     Active Substance: HYDROXYCHLOROQUINE DIPHOSPHATE
     Dosage: UNK
  3. METHOTREXATE SODIUM. [Suspect]
     Active Substance: METHOTREXATE SODIUM
     Indication: RHEUMATOID ARTHRITIS
     Dosage: 10 MG(Q UNKNOWN)
     Route: 048
  4. NAPROGESIC [NAPROXEN] [Concomitant]
     Indication: PAIN
     Dosage: UNK, DAILY (EVERY (Q) 2-3 TIMES DAILY)
  5. XELJANZ [Suspect]
     Active Substance: TOFACITINIB CITRATE
     Indication: RHEUMATOID ARTHRITIS
     Dosage: 5 MG, 2X/DAY
     Route: 048
     Dates: start: 20160219

REACTIONS (7)
  - Back pain [Unknown]
  - Nerve injury [Unknown]
  - Peripheral swelling [Unknown]
  - Pelvic fracture [Unknown]
  - Herpes zoster [Unknown]
  - Hypoaesthesia [Unknown]
  - Limb injury [Unknown]

NARRATIVE: CASE EVENT DATE: 2017
